FAERS Safety Report 19494027 (Version 1)
Quarter: 2021Q3

REPORT INFORMATION
  Report Type: Report from Study
  Country: IN (occurrence: IN)
  Receive Date: 20210705
  Receipt Date: 20210705
  Transmission Date: 20211014
  Serious: Yes (Death, Hospitalization)
  Sender: FDA-Public Use
  Company Number: IN-JNJFOC-20210661262

PATIENT
  Age: 23 Year
  Sex: Male
  Weight: 39.7 kg

DRUGS (9)
  1. LINEZOLID. [Suspect]
     Active Substance: LINEZOLID
     Indication: PULMONARY TUBERCULOSIS
     Route: 065
     Dates: start: 20200922, end: 20210627
  2. METOCLOPRAMIDE. [Concomitant]
     Active Substance: METOCLOPRAMIDE
     Indication: VOMITING
     Dosage: SOS
     Route: 065
     Dates: start: 20200922, end: 20210627
  3. OMEPRAZOLE. [Concomitant]
     Active Substance: OMEPRAZOLE
     Indication: GASTRITIS
     Route: 065
     Dates: start: 20200922, end: 20210627
  4. DELAMANID [Suspect]
     Active Substance: DELAMANID
     Indication: PULMONARY TUBERCULOSIS
     Route: 065
     Dates: start: 20200922, end: 20210627
  5. ONDANSETRON [Concomitant]
     Active Substance: ONDANSETRON
     Indication: VOMITING
     Dosage: SOS
     Route: 065
     Dates: start: 20200922, end: 20210627
  6. AMOXCLAV [AMOXICILLIN;CLAVULANIC ACID] [Suspect]
     Active Substance: AMOXICILLIN\CLAVULANIC ACID
     Indication: PULMONARY TUBERCULOSIS
     Route: 065
     Dates: start: 20200922, end: 20210627
  7. CLOFAZIMINA [Suspect]
     Active Substance: CLOFAZIMINE
     Indication: PULMONARY TUBERCULOSIS
     Route: 065
     Dates: start: 20200922, end: 20210627
  8. BEDAQUILINE [Suspect]
     Active Substance: BEDAQUILINE
     Indication: PULMONARY TUBERCULOSIS
     Route: 048
     Dates: start: 20200922, end: 20210627
  9. IMIPENEM [Suspect]
     Active Substance: IMIPENEM
     Indication: PULMONARY TUBERCULOSIS
     Route: 042
     Dates: start: 20200922, end: 20210627

REACTIONS (5)
  - Off label use [Unknown]
  - Death [Fatal]
  - Dyspnoea [Unknown]
  - Oxygen saturation decreased [Unknown]
  - Product use issue [Unknown]

NARRATIVE: CASE EVENT DATE: 20200922
